FAERS Safety Report 24926956 (Version 1)
Quarter: 2025Q1

REPORT INFORMATION
  Report Type: Spontaneous
  Country: EG (occurrence: EG)
  Receive Date: 20250205
  Receipt Date: 20250205
  Transmission Date: 20250409
  Serious: Yes (Hospitalization, Other)
  Sender: HIKMA
  Company Number: EG-HIKMA PHARMACEUTICALS-EG-H14001-25-00977

PATIENT
  Age: 66 Year
  Sex: Female
  Weight: 80 kg

DRUGS (8)
  1. CISPLATIN [Suspect]
     Active Substance: CISPLATIN
     Indication: Myelofibrosis
     Dosage: CYCLE 1, DAY 1, FROM DAY 1 TO DAY 4, VERY 28 DAY
     Route: 041
     Dates: start: 20240706
  2. CISPLATIN [Suspect]
     Active Substance: CISPLATIN
     Indication: Plasma cell myeloma
     Dosage: CYCLE 3, DAY 1, FROM DAY 1 TO DAY 4, VERY 28 DAY
     Route: 041
     Dates: start: 20241208
  3. DEXAMETHASONE [Suspect]
     Active Substance: DEXAMETHASONE
     Indication: Myelofibrosis
     Dosage: CYCLE 1, DAY 1, FROM DAY 1 TO DAY 4, VERY 28 DAY
     Route: 041
     Dates: start: 20240706
  4. DEXAMETHASONE [Suspect]
     Active Substance: DEXAMETHASONE
     Indication: Plasma cell myeloma
     Dosage: CYCLE 3, DAY 1, FROM DAY 1 TO DAY 4, VERY 28 DAY
     Route: 041
     Dates: start: 20241208
  5. CYCLOPHOSPHAMIDE [Suspect]
     Active Substance: CYCLOPHOSPHAMIDE
     Indication: Myelofibrosis
     Dosage: CYCLE 1, DAY 1, FROM DAY 1 TO DAY 4, VERY 28 DAY
     Route: 041
     Dates: start: 20240706
  6. CYCLOPHOSPHAMIDE [Suspect]
     Active Substance: CYCLOPHOSPHAMIDE
     Indication: Plasma cell myeloma
     Dosage: CYCLE 3, DAY 1, FROM DAY 1 TO DAY 4, VERY 28 DAY
     Route: 041
     Dates: start: 20241208
  7. ETOPOSIDE [Suspect]
     Active Substance: ETOPOSIDE
     Indication: Myelofibrosis
     Dosage: CYCLE 1, DAY 1, FROM DAY 1 TO DAY 4, VERY 28 DAY
     Route: 041
     Dates: start: 20240706
  8. ETOPOSIDE [Suspect]
     Active Substance: ETOPOSIDE
     Indication: Plasma cell myeloma
     Dosage: CYCLE 3, DAY 1, FROM DAY 1 TO DAY 4, VERY 28 DAY
     Route: 041
     Dates: start: 20241208

REACTIONS (10)
  - Febrile neutropenia [Recovered/Resolved]
  - Pyrexia [Recovered/Resolved]
  - Stomatitis [Recovered/Resolved]
  - Neuropathy peripheral [Recovered/Resolved]
  - Cough [Recovered/Resolved]
  - Vomiting [Recovered/Resolved]
  - Anaemia [Recovered/Resolved]
  - Leukopenia [Recovered/Resolved]
  - Neutropenia [Recovered/Resolved]
  - Thrombocytopenia [Recovered/Resolved]

NARRATIVE: CASE EVENT DATE: 20241211
